FAERS Safety Report 4618163-1 (Version None)
Quarter: 2005Q1

REPORT INFORMATION
  Report Type: 
  Country: None (occurrence: None)
  Receive Date: 20050323
  Receipt Date: 20050309
  Transmission Date: 20050727
  Serious: Yes (Death, Life-Threatening, Hospitalization, Other)
  Sender: FDA-Public Use
  Company Number: DE-2005-002686

PATIENT
  Age: 63 Year
  Sex: Male
  Weight: 60 kg

DRUGS (6)
  1. CAMPATH [Suspect]
     Indication: CHRONIC LYMPHOCYTIC LEUKAEMIA
     Dosage: 30 MG
     Dates: start: 20040814, end: 20041201
  2. FLUDARABINE PHOSPHATE [Suspect]
     Indication: CHRONIC LYMPHOCYTIC LEUKAEMIA
     Dosage: SEE  IMAGE
     Dates: start: 20040329, end: 20040401
  3. FLUDARABINE PHOSPHATE [Suspect]
     Indication: CHRONIC LYMPHOCYTIC LEUKAEMIA
     Dosage: SEE  IMAGE
     Dates: start: 20040426, end: 20040401
  4. FLUDARABINE PHOSPHATE [Suspect]
     Indication: CHRONIC LYMPHOCYTIC LEUKAEMIA
     Dosage: SEE  IMAGE
     Dates: start: 20040524, end: 20040501
  5. NEXIUM [Concomitant]
  6. PREDNISOLONE [Concomitant]

REACTIONS (11)
  - AUTOIMMUNE THYROIDITIS [None]
  - BRONCHIAL INFECTION [None]
  - CARDIAC FAILURE [None]
  - CHOLELITHIASIS [None]
  - COOMBS POSITIVE HAEMOLYTIC ANAEMIA [None]
  - ENCEPHALITIS CYTOMEGALOVIRUS [None]
  - HEPATITIS TOXIC [None]
  - HERPES SIMPLEX [None]
  - INFECTION IN AN IMMUNOCOMPROMISED HOST [None]
  - LUNG INFECTION [None]
  - NYSTAGMUS [None]
